FAERS Safety Report 4727612-X (Version None)
Quarter: 2005Q3

REPORT INFORMATION
  Report Type: 
  Country: None (occurrence: None)
  Receive Date: 20050728
  Receipt Date: 20050622
  Transmission Date: 20060218
  Serious: Yes (Other)
  Sender: FDA-Public Use
  Company Number: JP-BRISTOL-MYERS SQUIBB COMPANY-13020532

PATIENT
  Age: 81 Year
  Sex: Male

DRUGS (2)
  1. FUNGIZONE [Suspect]
     Indication: MENINGITIS CRYPTOCOCCAL
     Route: 042
     Dates: start: 20020401, end: 20020401
  2. DIFLUCAN [Concomitant]
     Indication: MENINGITIS CRYPTOCOCCAL
     Route: 041
     Dates: start: 20020201

REACTIONS (3)
  - PYREXIA [None]
  - RENAL DISORDER [None]
  - RESTLESSNESS [None]
